FAERS Safety Report 7349491-7 (Version None)
Quarter: 2011Q1

REPORT INFORMATION
  Report Type: 
  Country: None (occurrence: None)
  Receive Date: 20110303
  Receipt Date: 20110228
  Transmission Date: 20110831
  Serious: Yes (Death, Hospitalization)
  Sender: FDA-Public Use
  Company Number: 2010SP063551

PATIENT
  Age: 54 Year
  Sex: Female

DRUGS (8)
  1. TEMOZOLOMIDE [Suspect]
     Indication: NEOPLASM
     Dosage: PO
     Route: 048
     Dates: start: 20101018
  2. ABT-888 [Suspect]
     Indication: NEOPLASM
     Dosage: 30 MG;BID;PO
     Route: 048
     Dates: start: 20101018, end: 20101024
  3. PROCHLORPERAZINE EDISYLATE [Concomitant]
  4. LOPERAMIDE HYDROCHLORIDE [Concomitant]
  5. ONDANSETRON [Concomitant]
  6. PANTOPRAZOLE [Concomitant]
  7. FENTANYL [Concomitant]
  8. HYDROCODONE BITARTRATE [Concomitant]

REACTIONS (13)
  - CONVULSION [None]
  - CARDIO-RESPIRATORY ARREST [None]
  - PLEURAL EFFUSION [None]
  - PERICARDIAL EFFUSION [None]
  - METABOLIC ACIDOSIS [None]
  - BLOOD SODIUM DECREASED [None]
  - HYPOTENSION [None]
  - BLOOD GLUCOSE INCREASED [None]
  - LEFT VENTRICULAR DYSFUNCTION [None]
  - EJECTION FRACTION DECREASED [None]
  - TROPONIN INCREASED [None]
  - HAEMATOCRIT DECREASED [None]
  - HAEMOGLOBIN DECREASED [None]
